FAERS Safety Report 6091480-7 (Version None)
Quarter: 2009Q1

REPORT INFORMATION
  Report Type: 
  Country: None (occurrence: None)
  Receive Date: 20090225
  Receipt Date: 20090213
  Transmission Date: 20090719
  Serious: Yes (Death, Congenital Anomaly)
  Sender: FDA-Public Use
  Company Number: TR-BAYER-200914008GPV

PATIENT

DRUGS (1)
  1. YASMIN [Suspect]
     Route: 064
     Dates: start: 20080101, end: 20080101

REACTIONS (1)
  - MENINGOMYELOCELE [None]
